FAERS Safety Report 15741143 (Version 3)
Quarter: 2019Q2

REPORT INFORMATION
  Report Type: Spontaneous
  Country: GB (occurrence: GB)
  Receive Date: 20181219
  Receipt Date: 20190530
  Transmission Date: 20190711
  Serious: Yes (Disabling)
  Sender: FDA-Public Use
  Company Number: GB-MYLANLABS-2018M1094072

PATIENT
  Age: 50 Year
  Sex: Female

DRUGS (13)
  1. CITALOPRAM [Suspect]
     Active Substance: CITALOPRAM HYDROBROMIDE
     Indication: DEPRESSION
     Dosage: UNK (INITIALLY REDUCED FROM 40 MG TO 20 MG AND THEN REINSTATING THE DOSE.)
     Route: 048
     Dates: start: 2006
  2. METHOTREXATE. [Concomitant]
     Active Substance: METHOTREXATE
     Dosage: 25 MILLIGRAM, QW
  3. VITAMIN D                          /00107901/ [Concomitant]
     Active Substance: ERGOCALCIFEROL
     Dosage: 5 MILLIGRAM
  4. FOLIC ACID. [Concomitant]
     Active Substance: FOLIC ACID
     Dosage: 5 MILLIGRAM
  5. CALCIUM                            /01767901/ [Concomitant]
     Dosage: 5 MILLIGRAM
  6. RAMIPRIL. [Concomitant]
     Active Substance: RAMIPRIL
     Dosage: 10 MILLIGRAM
  7. COCODAMOL [Concomitant]
     Active Substance: ACETAMINOPHEN\CODEINE PHOSPHATE
     Dosage: 10 MILLIGRAM
  8. ERGOCALCIFEROL. [Concomitant]
     Active Substance: ERGOCALCIFEROL
  9. ACETYLSALICYLIC ACID [Concomitant]
     Active Substance: ASPIRIN
     Dosage: UNK
     Route: 065
  10. ASPIRIN                            /00002701/ [Concomitant]
     Active Substance: ASPIRIN
     Dosage: 5 MILLIGRAM
  11. ATORVASTATIN [Concomitant]
     Active Substance: ATORVASTATIN
     Dosage: 10 MILLIGRAM
  12. OMEPRAZOLE. [Concomitant]
     Active Substance: OMEPRAZOLE
     Dosage: 20 MILLIGRAM
  13. FOLATE SODIUM [Concomitant]
     Active Substance: FOLATE SODIUM

REACTIONS (11)
  - Withdrawal syndrome [Unknown]
  - Visual impairment [Recovered/Resolved]
  - Poor quality sleep [Unknown]
  - Weight increased [Recovered/Resolved]
  - Abnormal dreams [Unknown]
  - Sensory disturbance [Recovered/Resolved]
  - Paraesthesia [Recovered/Resolved]
  - Fall [Unknown]
  - Fatigue [Recovered/Resolved]
  - Dizziness [Recovered/Resolved]
  - Hyperacusis [Recovered/Resolved]

NARRATIVE: CASE EVENT DATE: 201803
